FAERS Safety Report 14875126 (Version 2)
Quarter: 2018Q3

REPORT INFORMATION
  Report Type: Report from Study
  Country: US (occurrence: US)
  Receive Date: 20180510
  Receipt Date: 20180817
  Transmission Date: 20181010
  Serious: Yes (Hospitalization, Other)
  Sender: FDA-Public Use
  Company Number: US-GLAXOSMITHKLINE-US2018GSK082053

PATIENT
  Age: 72 Year
  Sex: Female
  Weight: 55.78 kg

DRUGS (3)
  1. FLUTICASONE PROPIONATE+SALMETEROL XINAFOATE [Suspect]
     Active Substance: FLUTICASONE PROPIONATE\SALMETEROL XINAFOATE
     Indication: ASTHMA
  2. HUMIRA [Suspect]
     Active Substance: ADALIMUMAB
     Indication: CROHN^S DISEASE
     Dosage: UNK
     Route: 058
     Dates: start: 2013
  3. METHOTREXATE. [Concomitant]
     Active Substance: METHOTREXATE

REACTIONS (17)
  - Vomiting [Recovered/Resolved]
  - Dysphagia [Recovered/Resolved]
  - Pain [Unknown]
  - Cataract [Recovered/Resolved]
  - Blood potassium decreased [Unknown]
  - Nasopharyngitis [Recovered/Resolved]
  - Bone erosion [Unknown]
  - Arthritis [Unknown]
  - Weight decreased [Recovering/Resolving]
  - Oropharyngitis fungal [Recovered/Resolved]
  - Gait disturbance [Recovered/Resolved]
  - Hypophagia [Recovering/Resolving]
  - Muscle spasms [Recovered/Resolved]
  - Electrocardiogram QT prolonged [Unknown]
  - Bronchitis [Recovered/Resolved]
  - Gastrointestinal fungal infection [Recovered/Resolved]
  - Dehydration [Recovered/Resolved]

NARRATIVE: CASE EVENT DATE: 2017
